FAERS Safety Report 5952662-5 (Version None)
Quarter: 2008Q4

REPORT INFORMATION
  Report Type: 
  Country: None (occurrence: None)
  Receive Date: 20081027
  Receipt Date: 20080827
  Transmission Date: 20090506
  Serious: No
  Sender: FDA-Public Use
  Company Number: PYLE-2008-020

PATIENT
  Age: 72 Year
  Sex: Male

DRUGS (1)
  1. PYLERA [Suspect]
     Indication: HELICOBACTER INFECTION
     Dosage: 3 CAPSULES QID
     Dates: start: 20080623, end: 20080628

REACTIONS (4)
  - BLISTER [None]
  - PRURITUS [None]
  - RASH [None]
  - RASH GENERALISED [None]
